FAERS Safety Report 9086153 (Version 1)
Quarter: 2013Q1

REPORT INFORMATION
  Report Type: Spontaneous
  Country: US (occurrence: US)
  Receive Date: 20130201
  Receipt Date: 20130201
  Transmission Date: 20140127
  Serious: Yes (Hospitalization)
  Sender: FDA-Public Use
  Company Number: US-AMGEN-USASP2013005826

PATIENT
  Age: 57 Year
  Sex: Female
  Weight: 54.42 kg

DRUGS (6)
  1. ENBREL [Suspect]
     Indication: RHEUMATOID ARTHRITIS
     Dosage: 50 MG, QWK
     Route: 058
  2. PREDNISONE [Concomitant]
     Dosage: 1 MG, UNK
     Route: 048
  3. DIOVAN [Concomitant]
     Dosage: 40 MG, UNK
     Route: 048
  4. VITAMIN E                          /00110501/ [Concomitant]
     Dosage: 400 UNIT, UNK
     Route: 048
  5. CALCIUM +D                         /00944201/ [Concomitant]
     Dosage: UNK
     Route: 048
  6. VITAMIN C                          /00008001/ [Concomitant]
     Dosage: 100 MG, CHW UNK
     Route: 048

REACTIONS (4)
  - Pancreatitis [Unknown]
  - Pneumonia [Unknown]
  - Weight decreased [Unknown]
  - Abdominal pain [Unknown]
